FAERS Safety Report 23953704 (Version 1)
Quarter: 2024Q2

REPORT INFORMATION
  Report Type: Spontaneous
  Country: US (occurrence: US)
  Receive Date: 20240608
  Receipt Date: 20240608
  Transmission Date: 20240716
  Serious: No
  Sender: FDA-Public Use
  Company Number: US-STI Pharma LLC-2157896

PATIENT
  Age: 63 Year
  Sex: Male

DRUGS (4)
  1. ETHAMBUTOL HYDROCHLORIDE [Suspect]
     Active Substance: ETHAMBUTOL HYDROCHLORIDE
  2. AZITHROMYCIN [Concomitant]
     Active Substance: AZITHROMYCIN
  3. ARIKAYCE [Concomitant]
     Active Substance: AMIKACIN
  4. RIFAMPIN [Concomitant]
     Active Substance: RIFAMPIN

REACTIONS (1)
  - Drug intolerance [Unknown]
